APPROVED DRUG PRODUCT: MD-GASTROVIEW
Active Ingredient: DIATRIZOATE MEGLUMINE; DIATRIZOATE SODIUM
Strength: 66%;10%
Dosage Form/Route: SOLUTION;ORAL, RECTAL
Application: A087388 | Product #001 | TE Code: AA
Applicant: LIEBEL-FLARSHEIM CO LLC
Approved: Approved Prior to Jan 1, 1982 | RLD: No | RS: No | Type: RX